FAERS Safety Report 8835430 (Version 4)
Quarter: 2013Q1

REPORT INFORMATION
  Report Type: Report from Study
  Country: AU (occurrence: AU)
  Receive Date: 20121011
  Receipt Date: 20130325
  Transmission Date: 20140127
  Serious: Yes (Life-Threatening, Hospitalization, Other)
  Sender: FDA-Public Use
  Company Number: PHHY2012AU090057

PATIENT
  Sex: Female

DRUGS (2)
  1. CLOZARIL [Suspect]
     Dosage: 300 MG, UNK
     Dates: start: 19940428
  2. CLOZARIL [Suspect]
     Dosage: UNK UKN, UNK
     Dates: end: 20130309

REACTIONS (4)
  - Ovarian cancer [Not Recovered/Not Resolved]
  - Hallucination, auditory [Unknown]
  - Terminal state [Unknown]
  - Drug dispensing error [Unknown]
